FAERS Safety Report 7059356-6 (Version None)
Quarter: 2010Q4

REPORT INFORMATION
  Report Type: 
  Country: None (occurrence: None)
  Receive Date: 20101025
  Receipt Date: 20101014
  Transmission Date: 20110411
  Serious: No
  Sender: FDA-Public Use
  Company Number: 2009BI032466

PATIENT
  Sex: Female

DRUGS (2)
  1. TYSABRI [Suspect]
     Indication: MULTIPLE SCLEROSIS
     Route: 042
     Dates: start: 20080422, end: 20080601
  2. TYSABRI [Suspect]
     Route: 042
     Dates: start: 20090301

REACTIONS (8)
  - ACCIDENT [None]
  - BALANCE DISORDER [None]
  - DEPRESSED MOOD [None]
  - DRUG INEFFECTIVE [None]
  - FRUSTRATION [None]
  - MEMORY IMPAIRMENT [None]
  - MULTIPLE SCLEROSIS [None]
  - MULTIPLE SCLEROSIS RELAPSE [None]
